FAERS Safety Report 13164077 (Version 1)
Quarter: 2017Q1

REPORT INFORMATION
  Report Type: Spontaneous
  Country: US (occurrence: US)
  Receive Date: 20170130
  Receipt Date: 20170130
  Transmission Date: 20170428
  Serious: No
  Sender: FDA-Public Use
  Company Number: PHEH2017US002676

PATIENT
  Age: 84 Year
  Sex: Male

DRUGS (2)
  1. VOTRIENT [Suspect]
     Active Substance: PAZOPANIB HYDROCHLORIDE
     Indication: BENIGN PROSTATIC HYPERPLASIA
     Dosage: 800 MG, QD
     Route: 048
     Dates: start: 20161208
  2. VOTRIENT [Suspect]
     Active Substance: PAZOPANIB HYDROCHLORIDE
     Indication: LOWER URINARY TRACT SYMPTOMS

REACTIONS (3)
  - Syncope [Unknown]
  - Dizziness [Unknown]
  - Product use issue [Unknown]

NARRATIVE: CASE EVENT DATE: 20161208
